FAERS Safety Report 8463418-6 (Version None)
Quarter: 2012Q2

REPORT INFORMATION
  Report Type: 
  Country: None (occurrence: None)
  Receive Date: 20120625
  Receipt Date: 20120621
  Transmission Date: 20120825
  Serious: Yes (Other)
  Sender: FDA-Public Use
  Company Number: ES-MERCK-1206ESP00026

PATIENT
  Age: 64 Year
  Sex: Female

DRUGS (6)
  1. JANUMET [Suspect]
     Route: 048
     Dates: start: 20120123, end: 20120125
  2. ATORVASTATIN [Concomitant]
     Indication: HYPERCHOLESTEROLAEMIA
     Route: 048
  3. OMEPRAZOLE [Concomitant]
     Route: 048
  4. ASPIRIN [Concomitant]
     Route: 048
  5. GLIMEPIRIDE [Concomitant]
     Indication: DIABETES MELLITUS
     Route: 048
     Dates: start: 20101001, end: 20120116
  6. JANUMET [Suspect]
     Indication: DIABETES MELLITUS
     Route: 048
     Dates: start: 20120117, end: 20120120

REACTIONS (1)
  - VERTIGO [None]
